FAERS Safety Report 5588409-4 (Version None)
Quarter: 2008Q1

REPORT INFORMATION
  Report Type: 
  Country: None (occurrence: None)
  Receive Date: 20080111
  Receipt Date: 20071120
  Transmission Date: 20080703
  Serious: No
  Sender: FDA-Public Use
  Company Number: A0695397A

PATIENT
  Age: 51 Year
  Sex: Female

DRUGS (5)
  1. TYKERB [Suspect]
     Indication: NEOPLASM
     Dosage: 250MG EIGHT TIMES PER DAY
     Route: 048
     Dates: start: 20071112
  2. DEXAMETHASONE TAB [Concomitant]
  3. AMBIEN [Concomitant]
  4. FAMOTIDINE [Concomitant]
  5. CLOTRIMAZOLE [Concomitant]

REACTIONS (5)
  - BURNING SENSATION [None]
  - DIZZINESS [None]
  - GAIT DISTURBANCE [None]
  - INTENTIONAL DRUG MISUSE [None]
  - TREMOR [None]
